FAERS Safety Report 5416411-1 (Version None)
Quarter: 2007Q3

REPORT INFORMATION
  Report Type: 
  Country: None (occurrence: None)
  Receive Date: 20070816
  Receipt Date: 20070404
  Transmission Date: 20080115
  Serious: No
  Sender: FDA-Public Use
  Company Number: US-KINGPHARMUSA00001-K200700781

PATIENT

DRUGS (1)
  1. BREVITAL SODIUM INJ [Suspect]

REACTIONS (1)
  - DRUG SCREEN POSITIVE [None]
